FAERS Safety Report 15864796 (Version 1)
Quarter: 2019Q1

REPORT INFORMATION
  Report Type: Spontaneous
  Country: US (occurrence: US)
  Receive Date: 20190124
  Receipt Date: 20190124
  Transmission Date: 20190417
  Serious: Yes (Other)
  Sender: FDA-Public Use
  Company Number: US-ENDO PHARMACEUTICALS INC-2018-036116

PATIENT
  Sex: Male
  Weight: 82.54 kg

DRUGS (8)
  1. FORTESTA [Suspect]
     Active Substance: TESTOSTERONE
     Indication: LIBIDO DECREASED
     Dosage: 40 MG, DAILY (2 PUMPS PER THIGH DAILY)
     Route: 061
  2. COREG [Concomitant]
     Active Substance: CARVEDILOL
     Indication: CARDIOMYOPATHY
     Dosage: 6.25 MG, DAILY
     Route: 065
     Dates: start: 2010
  3. FORTESTA [Suspect]
     Active Substance: TESTOSTERONE
     Indication: HYPOGONADISM
     Dosage: 40 MG, DAILY (2 PUMPS PER THIGH DAILY)
     Route: 061
  4. LISINOPRIL. [Concomitant]
     Active Substance: LISINOPRIL
     Indication: CARDIOMYOPATHY
     Dosage: 10 MG, DAILY
     Route: 065
     Dates: start: 2010
  5. LEVOTHYROXINE. [Concomitant]
     Active Substance: LEVOTHYROXINE
     Indication: HYPOTHYROIDISM
     Dosage: 100 ?G, DAILY
     Route: 065
  6. GABAPENTIN. [Concomitant]
     Active Substance: GABAPENTIN
     Indication: PRODUCT USED FOR UNKNOWN INDICATION
     Dosage: 800 MG, TID
     Route: 065
  7. FORTESTA [Suspect]
     Active Substance: TESTOSTERONE
     Dosage: 40 MG, DAILY (2 PUMPS PER THIGH DAILY)
     Route: 061
  8. CRESTOR [Concomitant]
     Active Substance: ROSUVASTATIN CALCIUM
     Indication: BLOOD CHOLESTEROL INCREASED
     Dosage: 10 MG, DAILY
     Route: 065

REACTIONS (4)
  - Prostatic specific antigen increased [Unknown]
  - Product container issue [Unknown]
  - Underdose [Unknown]
  - Blood testosterone decreased [Unknown]
